FAERS Safety Report 9155621 (Version 1)
Quarter: 2013Q1

REPORT INFORMATION
  Report Type: Spontaneous
  Country: ES (occurrence: ES)
  Receive Date: 20130311
  Receipt Date: 20130311
  Transmission Date: 20140127
  Serious: Yes (Other)
  Sender: FDA-Public Use
  Company Number: ES-GLAXOSMITHKLINE-B0873751A

PATIENT
  Age: 53 Year
  Sex: Female
  Weight: 77 kg

DRUGS (2)
  1. TYVERB [Suspect]
     Indication: BREAST CANCER
     Route: 048
     Dates: start: 20120213
  2. XELODA [Suspect]
     Indication: BREAST CANCER
     Route: 048
     Dates: start: 20120213

REACTIONS (5)
  - Asthenia [Unknown]
  - Diarrhoea [Unknown]
  - Paronychia [Unknown]
  - Nausea [Unknown]
  - Skin fissures [Unknown]
